FAERS Safety Report 15287628 (Version 2)
Quarter: 2018Q3

REPORT INFORMATION
  Report Type: Report from Study
  Country: None (occurrence: HU)
  Receive Date: 20180817
  Receipt Date: 20180912
  Transmission Date: 20181010
  Serious: Yes (Death)
  Sender: FDA-Public Use
  Company Number: HU-ABBVIE-18S-076-2453107-00

PATIENT
  Sex: Male

DRUGS (7)
  1. DUODOPA [Suspect]
     Active Substance: CARBIDOPA\LEVODOPA
     Indication: PARKINSON^S DISEASE
     Dosage: MORNING DOSE 7.8 ML; CONTINUOUS DOSE 5.3 ML/H;EXTRA DOSE 2.5 ML
     Route: 050
     Dates: start: 20160420, end: 20180803
  2. CORBILTA [Concomitant]
     Active Substance: CARBIDOPA\ENTACAPONE\LEVODOPA
     Indication: PARKINSON^S DISEASE
     Dosage: 125/31.25/200MG 1?2 TABLETS AT NIGHT
     Route: 048
  3. PANTOPRAZOLE [Concomitant]
     Active Substance: PANTOPRAZOLE
     Indication: PROPHYLAXIS
     Route: 048
  4. CADUET [Concomitant]
     Active Substance: AMLODIPINE BESYLATE\ATORVASTATIN CALCIUM
     Indication: HYPERTENSION
     Dosage: 5MG / 10MG
     Route: 048
  5. ASA PROTECT [Concomitant]
     Indication: CEREBROVASCULAR ACCIDENT PROPHYLAXIS
     Dosage: 1 TABLET IN THE MORNING
     Route: 048
     Dates: start: 201604
  6. FINASTERIDE. [Concomitant]
     Active Substance: FINASTERIDE
     Indication: BENIGN PROSTATIC HYPERPLASIA
     Route: 048
     Dates: start: 2016
  7. NUTRIDRINK [Concomitant]
     Active Substance: CARBOHYDRATES\FATTY ACIDS\MINERALS\PROTEIN\VITAMINS
     Indication: WEIGHT INCREASED
     Route: 048
     Dates: start: 201702

REACTIONS (4)
  - Fluid imbalance [Fatal]
  - Parkinson^s disease [Fatal]
  - Mental impairment [Fatal]
  - Renal failure [Fatal]
